FAERS Safety Report 19184676 (Version 1)
Quarter: 2021Q2

REPORT INFORMATION
  Report Type: Spontaneous
  Country: US (occurrence: US)
  Receive Date: 20210427
  Receipt Date: 20210427
  Transmission Date: 20210717
  Serious: Yes (Other)
  Sender: FDA-Public Use
  Company Number: US-ROCHE-2817310

PATIENT
  Sex: Female

DRUGS (3)
  1. LEVAQUIN [Concomitant]
     Active Substance: LEVOFLOXACIN
  2. XOLAIR [Suspect]
     Active Substance: OMALIZUMAB
     Indication: CHRONIC SPONTANEOUS URTICARIA
  3. XOLAIR [Suspect]
     Active Substance: OMALIZUMAB
     Indication: ASTHMA
     Dosage: ONGOING: YES
     Route: 058

REACTIONS (1)
  - Anaphylactic reaction [Recovered/Resolved]
